FAERS Safety Report 20462870 (Version 2)
Quarter: 2022Q1

REPORT INFORMATION
  Report Type: Spontaneous
  Country: DK (occurrence: DK)
  Receive Date: 20220211
  Receipt Date: 20220303
  Transmission Date: 20220423
  Serious: Yes (Hospitalization, Other)
  Sender: FDA-Public Use
  Company Number: DK-NOVARTISPH-NVSC2021DK302381

PATIENT
  Sex: Female
  Weight: 1.09 kg

DRUGS (4)
  1. DICLOFENAC [Suspect]
     Active Substance: DICLOFENAC
     Indication: Foetal exposure during pregnancy
     Dosage: MATERNAL DOSE: UNK
     Route: 064
  2. BETAMETHASONE [Suspect]
     Active Substance: BETAMETHASONE
     Indication: Foetal exposure during pregnancy
     Dosage: MATERNAL DOSE: UNK
     Route: 064
  3. ATOSIBAN [Suspect]
     Active Substance: ATOSIBAN
     Indication: Foetal exposure during pregnancy
     Dosage: MATERNAL DOSE: UNK
     Route: 064
  4. MAGNESIUM SULFATE [Suspect]
     Active Substance: MAGNESIUM SULFATE
     Indication: Foetal exposure during pregnancy
     Dosage: MATERNAL DOSE: UNK
     Route: 064

REACTIONS (11)
  - Premature baby [Unknown]
  - Neonatal intestinal perforation [Recovered/Resolved]
  - Breech presentation [Unknown]
  - Pneumoperitoneum [Recovered/Resolved]
  - Ileal perforation [Recovered/Resolved]
  - Ileus [Recovered/Resolved]
  - Stomal hernia [Recovered/Resolved]
  - Gastrointestinal necrosis [Recovered/Resolved]
  - Neonatal gastrointestinal haemorrhage [Recovered/Resolved]
  - Patent ductus arteriosus [Recovered/Resolved]
  - Foetal exposure during pregnancy [Unknown]
